FAERS Safety Report 15328432 (Version 4)
Quarter: 2021Q1

REPORT INFORMATION
  Report Type: Other
  Country: PT (occurrence: PT)
  Receive Date: 20180829
  Receipt Date: 20210309
  Transmission Date: 20210419
  Serious: Yes (Hospitalization)
  Sender: FDA-Public Use
  Company Number: PT-ROCHE-2176116

PATIENT
  Age: 65 Year
  Sex: Female
  Weight: 87 kg

DRUGS (25)
  1. BUDESONIDE. [Concomitant]
     Active Substance: BUDESONIDE
     Dosage: ONGOING = CHECKED
  2. BILASTINE [Concomitant]
     Active Substance: BILASTINE
     Dosage: ONGOING = CHECKED
  3. TRASTUZUMAB. [Suspect]
     Active Substance: TRASTUZUMAB
     Indication: BREAST CANCER
     Route: 042
     Dates: start: 20171024, end: 20180823
  4. ZOLPIDEM [Concomitant]
     Active Substance: ZOLPIDEM TARTRATE
     Dosage: ONGOING = CHECKED
  5. NEUTRAL INSULIN [Concomitant]
     Active Substance: INSULIN PORK\INSULIN PURIFIED PORK
     Dosage: ONGOING = CHECKED
  6. PARACETAMOL [Concomitant]
     Active Substance: ACETAMINOPHEN
     Dosage: ONGOING = CHECKED
     Dates: start: 20180108
  7. PARACETAMOL [Concomitant]
     Active Substance: ACETAMINOPHEN
     Dosage: ONGOING = CHECKED
  8. NAPROXENO [Concomitant]
     Active Substance: NAPROXEN
     Dosage: ONGOING = CHECKED
     Dates: start: 20180706
  9. PERTUZUMAB. [Suspect]
     Active Substance: PERTUZUMAB
     Indication: BREAST CANCER
     Dosage: LAST DOSE OF PERTUZUMAB PRIOR TO ONSET OF EVENT ON 30/JAN/2018.
     Route: 042
     Dates: start: 20171024
  10. DENOSUMAB [Suspect]
     Active Substance: DENOSUMAB
     Indication: BREAST CANCER
     Route: 058
     Dates: start: 20180509
  11. FORMOTEROL [Concomitant]
     Active Substance: FORMOTEROL
     Dosage: ONGOING = CHECKED
  12. DIAZEPAM. [Concomitant]
     Active Substance: DIAZEPAM
     Dosage: ONGOING = CHECKED
  13. LISINOPRIL. [Concomitant]
     Active Substance: LISINOPRIL
     Dosage: ONGOING = CHECKED
  14. THIOCOLCHICOSIDE [Concomitant]
     Active Substance: THIOCOLCHICOSIDE
     Dosage: ONGOING = CHECKED
     Dates: start: 20180706
  15. MONTELUKAST [Concomitant]
     Active Substance: MONTELUKAST SODIUM
  16. ROSUVASTATIN. [Concomitant]
     Active Substance: ROSUVASTATIN
     Dosage: ONGOING = CHECKED
  17. ESCITALOPRAM [Concomitant]
     Active Substance: ESCITALOPRAM OXALATE
     Dosage: ONGOING = CHECKED
  18. THIOCOLCHICOSIDE [Concomitant]
     Active Substance: THIOCOLCHICOSIDE
     Dosage: ONGOING = CHECKED
     Dates: start: 20180108
  19. OMEPRAZOL [Concomitant]
     Active Substance: OMEPRAZOLE
     Dosage: ONGOING = CHECKED
  20. LETROZOLE. [Suspect]
     Active Substance: LETROZOLE
     Indication: BREAST CANCER
     Route: 048
     Dates: start: 20180417, end: 20180906
  21. LOPERAMIDE [Concomitant]
     Active Substance: LOPERAMIDE
     Dosage: ONGOING = NOT CHECKED
     Dates: start: 20180104, end: 20180615
  22. METFORMIN [Concomitant]
     Active Substance: METFORMIN HYDROCHLORIDE
     Dosage: ONGOING = CHECKED
  23. ENOXAPARIN [Concomitant]
     Active Substance: ENOXAPARIN
     Dosage: ONGOING = CHECKED
  24. DOCETAXEL. [Suspect]
     Active Substance: DOCETAXEL
     Indication: BREAST CANCER
     Dosage: LAST DOSE OF PERTUZUMAB PRIOR TO ONSET OF EVENT ON 30/JAN/2018.
     Route: 042
     Dates: start: 20171024
  25. MORFINE [Concomitant]
     Active Substance: MORPHINE
     Dosage: ONGOING = CHECKED

REACTIONS (1)
  - Pyelonephritis [Recovered/Resolved]

NARRATIVE: CASE EVENT DATE: 20180714
